FAERS Safety Report 16385398 (Version 2)
Quarter: 2019Q2

REPORT INFORMATION
  Report Type: Other
  Country: FR (occurrence: FR)
  Receive Date: 20190603
  Receipt Date: 20190611
  Transmission Date: 20190711
  Serious: Yes (Life-Threatening, Other)
  Sender: FDA-Public Use
  Company Number: FR-HQ SPECIALTY-FR-2019INT000143

PATIENT
  Age: 74 Year
  Sex: Female

DRUGS (5)
  1. DEXMEDETOMIDINE HYDROCHLORIDE. [Suspect]
     Active Substance: DEXMEDETOMIDINE HYDROCHLORIDE
     Indication: ANAESTHESIA
     Dosage: 50 MG, UNK
     Route: 042
     Dates: start: 20190426, end: 20190426
  2. DIPRIVAN [Suspect]
     Active Substance: PROPOFOL
     Indication: INDUCTION OF ANAESTHESIA
     Dosage: 200 MG, UNK
     Route: 042
     Dates: start: 20190426, end: 20190426
  3. ESMERON [Suspect]
     Active Substance: ROCURONIUM BROMIDE
     Indication: INDUCTION OF ANAESTHESIA
     Dosage: 50 MG, UNK
     Route: 042
     Dates: start: 20190426, end: 20190426
  4. CEFAZOLINE                         /00288502/ [Suspect]
     Active Substance: CEFAZOLIN SODIUM
     Indication: ANTIBIOTIC PROPHYLAXIS
     Dosage: 2 G, UNK
     Route: 042
     Dates: start: 20190426, end: 20190426
  5. XYLOCAINE                          /00033402/ [Suspect]
     Active Substance: LIDOCAINE HYDROCHLORIDE
     Indication: ANAESTHESIA
     Dosage: 100 MG, UNK (40 MINUTES)
     Route: 042
     Dates: start: 20190426, end: 20190426

REACTIONS (2)
  - Anaphylactic shock [Recovered/Resolved]
  - Product use in unapproved indication [Unknown]

NARRATIVE: CASE EVENT DATE: 20190426
